FAERS Safety Report 9181210 (Version 2)
Quarter: 2013Q2

REPORT INFORMATION
  Report Type: Spontaneous
  Country: US (occurrence: US)
  Receive Date: 20130322
  Receipt Date: 20130503
  Transmission Date: 20140414
  Serious: No
  Sender: FDA-Public Use
  Company Number: US-PFIZER INC-2013093778

PATIENT
  Age: 5 Year
  Sex: Male

DRUGS (2)
  1. QUILLIVANT XR [Suspect]
     Indication: ATTENTION DEFICIT/HYPERACTIVITY DISORDER
     Dosage: 3 ML, UNK
     Route: 048
     Dates: start: 20130216, end: 20130306
  2. QUILLIVANT XR [Suspect]
     Dosage: 4 ML, UNK
     Route: 048
     Dates: start: 20130307, end: 20130313

REACTIONS (2)
  - Obsessive-compulsive disorder [Recovering/Resolving]
  - Agitation [Unknown]
